FAERS Safety Report 13784376 (Version 2)
Quarter: 2017Q4

REPORT INFORMATION
  Report Type: Report from Study
  Country: BR (occurrence: BR)
  Receive Date: 20170724
  Receipt Date: 20171025
  Transmission Date: 20180320
  Serious: Yes (Other)
  Sender: FDA-Public Use
  Company Number: ALCN2017BR004598

PATIENT
  Sex: Female
  Weight: 75 kg

DRUGS (5)
  1. XALATAN [Concomitant]
     Active Substance: LATANOPROST
     Indication: GLAUCOMA
     Dosage: 1 DF, QD (STARTED 8 YRS AGO)
     Route: 047
  2. HYDROCHLOROTHIAZIDE. [Concomitant]
     Active Substance: HYDROCHLOROTHIAZIDE
     Indication: HYPERTENSION
     Dosage: 1 DF, QD (STARTED 10 YEAR AGO)
     Route: 048
  3. SYSTANE ULTRA [Suspect]
     Active Substance: POLYETHYLENE GLYCOL 400\PROPYLENE GLYCOL
     Indication: EYE LUBRICATION THERAPY
     Dosage: UNK, QID (4 YEARS AGO)
     Route: 047
  4. LOSARTAN. [Concomitant]
     Active Substance: LOSARTAN
     Indication: HYPERTENSION
     Dosage: 1 DF, QD (STARTED 10 YEAR AGO)
     Route: 048
  5. SIMVASTATIN. [Concomitant]
     Active Substance: SIMVASTATIN
     Indication: HYPERTENSION
     Dosage: 1 DF, QD (STARTED 10 YEAR AGO)
     Route: 048

REACTIONS (5)
  - Cataract [Recovered/Resolved]
  - Eye swelling [Recovered/Resolved]
  - Rebound effect [Recovered/Resolved]
  - Eye pain [Recovered/Resolved]
  - Concomitant disease aggravated [Recovered/Resolved]
